FAERS Safety Report 5841800-0 (Version None)
Quarter: 2008Q3

REPORT INFORMATION
  Report Type: 
  Country: None (occurrence: None)
  Receive Date: 20080812
  Receipt Date: 20080808
  Transmission Date: 20090109
  Serious: Yes (Other)
  Sender: FDA-Public Use
  Company Number: A0741237A

PATIENT
  Age: 7 Month
  Sex: Female
  Weight: 7.6 kg

DRUGS (1)
  1. AMOXIL [Suspect]
     Dosage: 2.5ML TWICE PER DAY
     Route: 048
     Dates: start: 20080719

REACTIONS (5)
  - COUGH [None]
  - DRUG INEFFECTIVE [None]
  - PYREXIA [None]
  - THERAPEUTIC PRODUCT CONTAMINATION [None]
  - TRANSMISSION OF AN INFECTIOUS AGENT VIA A MEDICINAL PRODUCT [None]
